FAERS Safety Report 21782305 (Version 1)
Quarter: 2022Q4

REPORT INFORMATION
  Report Type: Report from Study
  Country: US (occurrence: US)
  Receive Date: 20221227
  Receipt Date: 20221227
  Transmission Date: 20230112
  Serious: No
  Sender: FDA-Public Use
  Company Number: US-ABBVIE-4212610

PATIENT
  Age: 34 Year
  Sex: Male

DRUGS (1)
  1. HUMIRA [Suspect]
     Active Substance: ADALIMUMAB
     Indication: Crohn^s disease
     Dosage: FORM STRENGTH: 40 MG
     Route: 058

REACTIONS (7)
  - Incorrect dose administered [Not Recovered/Not Resolved]
  - Injury associated with device [Not Recovered/Not Resolved]
  - Peripheral swelling [Unknown]
  - Joint range of motion decreased [Unknown]
  - Wrong technique in product usage process [Not Recovered/Not Resolved]
  - Bacterial infection [Unknown]
  - Erythema [Not Recovered/Not Resolved]

NARRATIVE: CASE EVENT DATE: 20221118
